FAERS Safety Report 12867611 (Version 2)
Quarter: 2016Q4

REPORT INFORMATION
  Report Type: Report from Study
  Country: None (occurrence: ES)
  Receive Date: 20161020
  Receipt Date: 20161021
  Transmission Date: 20170207
  Serious: Yes (Hospitalization)
  Sender: FDA-Public Use
  Company Number: ES-ABBVIE-16P-144-1755301-00

PATIENT
  Age: 83 Year
  Sex: Female

DRUGS (1)
  1. DUODOPA [Suspect]
     Active Substance: CARBIDOPA\LEVODOPA
     Indication: PARKINSON^S DISEASE
     Route: 050
     Dates: start: 20161005

REACTIONS (6)
  - Abdominal pain [Unknown]
  - Malaise [Unknown]
  - Stoma site inflammation [Not Recovered/Not Resolved]
  - Gastric infection [Recovering/Resolving]
  - Poor quality sleep [Unknown]
  - Depressed mood [Unknown]

NARRATIVE: CASE EVENT DATE: 20161012
